FAERS Safety Report 8509309-3 (Version None)
Quarter: 2012Q3

REPORT INFORMATION
  Report Type: 
  Country: None (occurrence: None)
  Receive Date: 20120713
  Receipt Date: 20120626
  Transmission Date: 20120928
  Serious: No
  Sender: FDA-Public Use
  Company Number: US-TEVA-345258USA

PATIENT

DRUGS (1)
  1. NUVIGIL [Suspect]
     Dosage: UNKNOWN
     Dates: end: 20120601

REACTIONS (2)
  - HEADACHE [None]
  - STOMATITIS [None]
